FAERS Safety Report 15587153 (Version 2)
Quarter: 2018Q4

REPORT INFORMATION
  Report Type: Report from Study
  Country: ZA (occurrence: ZA)
  Receive Date: 20181105
  Receipt Date: 20181214
  Transmission Date: 20190205
  Serious: Yes (Other)
  Sender: FDA-Public Use
  Company Number: ZA-SA-2018SA193648

PATIENT
  Age: 52 Year
  Sex: Female

DRUGS (8)
  1. INSULIN GLARGINE [Suspect]
     Active Substance: INSULIN GLARGINE
     Dosage: 10 U,BED TIME
     Route: 065
     Dates: start: 20180606
  2. BIGUANIDE [Concomitant]
     Active Substance: UNSPECIFIED INGREDIENT
     Indication: DIABETES MELLITUS
     Dosage: UNK UNK, UNK
     Route: 065
  3. METFORMIN [Concomitant]
     Active Substance: METFORMIN HYDROCHLORIDE
     Dosage: 500 UNK, AFTER BREAKFAST
     Route: 065
     Dates: start: 20180613
  4. METFORMIN [Concomitant]
     Active Substance: METFORMIN HYDROCHLORIDE
     Dosage: AS-500 MG | AB-500 MG | AL-500 MG
     Route: 065
     Dates: start: 20180613
  5. INSULIN GLARGINE [Suspect]
     Active Substance: INSULIN GLARGINE
     Dosage: 10 U, QD (AT NIGHT)
     Dates: start: 20180620
  6. METFORMIN [Concomitant]
     Active Substance: METFORMIN HYDROCHLORIDE
     Dosage: 500 UNK, AFTER LUNCH
     Dates: start: 20180613
  7. INSULIN GLARGINE [Suspect]
     Active Substance: INSULIN GLARGINE
     Indication: TYPE 2 DIABETES MELLITUS
     Dosage: 25 U, HS, NIGHT DOSE (AT BEDTIME)
     Route: 065
     Dates: start: 20180606
  8. INSULIN GLARGINE [Suspect]
     Active Substance: INSULIN GLARGINE
     Dosage: 12 U, NIGHT DOSE
     Route: 065

REACTIONS (7)
  - Sciatica [Not Recovered/Not Resolved]
  - Hypoglycaemia [Unknown]
  - Injection site bruising [Unknown]
  - Hypoglycaemia [Recovered/Resolved]
  - Paraesthesia [Not Recovered/Not Resolved]
  - Neuropathy peripheral [Not Recovered/Not Resolved]
  - Nerve compression [Not Recovered/Not Resolved]

NARRATIVE: CASE EVENT DATE: 20180919
